FAERS Safety Report 15093215 (Version 1)
Quarter: 2018Q2

REPORT INFORMATION
  Report Type: Report from Study
  Country: ZA (occurrence: ZA)
  Receive Date: 20180629
  Receipt Date: 20180629
  Transmission Date: 20180711
  Serious: Yes (Hospitalization)
  Sender: FDA-Public Use
  Company Number: PHHY2018ZA030253

PATIENT
  Sex: Female

DRUGS (3)
  1. TAREG [Suspect]
     Active Substance: VALSARTAN
     Indication: HYPERTENSION
     Dosage: 80 MG, UNK
     Route: 048
  2. ZOLPIHEXAL [Suspect]
     Active Substance: ZOLPIDEM TARTRATE
     Indication: INSOMNIA
     Dosage: 10 MG, UNK
     Route: 048
  3. NEXMEZOLE [Suspect]
     Active Substance: ESOMEPRAZOLE
     Indication: ULCER
     Dosage: 40 MG, UNK
     Route: 048

REACTIONS (1)
  - Pulmonary congestion [Unknown]
